FAERS Safety Report 17066752 (Version 1)
Quarter: 2019Q4

REPORT INFORMATION
  Report Type: Spontaneous
  Country: US (occurrence: US)
  Receive Date: 20191024
  Receipt Date: 20191024
  Transmission Date: 20200122
  Serious: No
  Sender: FDA-Public Use
  Company Number: None

PATIENT
  Sex: Female

DRUGS (1)
  1. ENTYVIO [Suspect]
     Active Substance: VEDOLIZUMAB
     Indication: CROHN^S DISEASE
     Dosage: ?          OTHER FREQUENCY:EVERY 8 WEEKS;?
     Route: 042
     Dates: start: 20180205

REACTIONS (10)
  - Tinnitus [None]
  - Ocular hyperaemia [None]
  - Abdominal pain upper [None]
  - Abdominal distension [None]
  - Diarrhoea [None]
  - Flatulence [None]
  - Arthralgia [None]
  - Dizziness [None]
  - Haematemesis [None]
  - Feeding disorder [None]
